FAERS Safety Report 15110091 (Version 3)
Quarter: 2018Q4

REPORT INFORMATION
  Report Type: Report from Study
  Country: AR (occurrence: AR)
  Receive Date: 20180705
  Receipt Date: 20181010
  Transmission Date: 20190204
  Serious: Yes (Death)
  Sender: FDA-Public Use
  Company Number: PHHY2018AR035711

PATIENT
  Sex: Male

DRUGS (4)
  1. DIOVAN [Suspect]
     Active Substance: VALSARTAN
     Dosage: 1 DF (160MG), BID
     Route: 065
  2. DIOVAN [Suspect]
     Active Substance: VALSARTAN
     Indication: BLOOD PRESSURE INCREASED
     Dosage: 80 MG, QD
     Route: 065
  3. DIOVAN [Suspect]
     Active Substance: VALSARTAN
     Dosage: 1 DF (160MG), QD
     Route: 065
  4. DIOVAN [Suspect]
     Active Substance: VALSARTAN
     Dosage: 1 DF (320MG), BID
     Route: 065

REACTIONS (6)
  - Colon cancer [Fatal]
  - Blood bilirubin abnormal [Unknown]
  - Product prescribing error [Unknown]
  - Hepatic cancer [Fatal]
  - Inappropriate schedule of product administration [Not Recovered/Not Resolved]
  - Intentional overdose [Not Recovered/Not Resolved]
